FAERS Safety Report 4591726-8 (Version None)
Quarter: 2005Q1

REPORT INFORMATION
  Report Type: 
  Country: None (occurrence: None)
  Receive Date: 20050218
  Receipt Date: 20050204
  Transmission Date: 20050727
  Serious: Yes (Hospitalization, Other)
  Sender: FDA-Public Use
  Company Number: 2005020006

PATIENT
  Age: 37 Year
  Sex: Female

DRUGS (1)
  1. SOMA [Suspect]
     Indication: MUSCLE SPASMS
     Dosage: 3 TABS Q4H, PO
     Route: 048
     Dates: start: 19970101, end: 20000601

REACTIONS (5)
  - CIRCULATORY COLLAPSE [None]
  - DEPENDENCE [None]
  - DRUG WITHDRAWAL SYNDROME [None]
  - HALLUCINATION [None]
  - MENTAL IMPAIRMENT [None]
